FAERS Safety Report 8506370 (Version 4)
Quarter: 2012Q4

REPORT INFORMATION
  Report Type: 
  Country: FR (occurrence: FR)
  Receive Date: 20120412
  Receipt Date: 20120919
  Transmission Date: 20130627
  Serious: Yes (Hospitalization, Other)
  Sender: FDA-Public Use
  Company Number: FR-009507513-1204USA00893

PATIENT

DRUGS (21)
  1. INVANZ [Suspect]
     Indication: INFECTION
     Dosage: 1 g, qd
     Route: 030
     Dates: start: 20111226, end: 20120116
  2. DIAMICRON [Suspect]
     Indication: TYPE 2 DIABETES MELLITUS
     Dosage: Increased
     Route: 048
     Dates: start: 20120109, end: 20120208
  3. DIAMICRON [Suspect]
     Dosage: 60 mg, qd
     Dates: start: 20120209
  4. PRAVASTATIN SODIUM [Suspect]
     Indication: DYSLIPIDAEMIA
     Dosage: 20 mg, bid
     Route: 048
     Dates: start: 20111224
  5. MAG 2 [Suspect]
     Indication: MINERAL SUPPLEMENTATION
     Dosage: 2 DF, qd
     Route: 048
     Dates: start: 20111224, end: 20120106
  6. MK-0805 [Concomitant]
     Dosage: 40 mg, bid
  7. KARDEGIC [Concomitant]
     Dosage: 75 mg, qd
     Route: 048
  8. CLOPIDOGREL [Concomitant]
     Dosage: 75 mg, qd
  9. FORLAX [Concomitant]
     Indication: CONSTIPATION
     Dosage: One sachet
  10. ARANESP (DARBEPOETIN ALFA) [Suspect]
     Indication: ANAEMIA
     Dosage: 30 ?g, QW
     Route: 058
     Dates: start: 20111025, end: 20120116
  11. AMLODIPINE [Concomitant]
     Dosage: 5 mg, qd
  12. ACETAMINOPHEN [Concomitant]
     Indication: PAIN
     Dosage: 1 g, qid
  13. OXYNORM [Concomitant]
     Indication: PAIN
     Dosage: 5 mg, qd
  14. IMOVANE [Concomitant]
     Dosage: 1 Dosage form
  15. NITRIDERM-TTS [Concomitant]
     Dosage: 1 patch
  16. PERINDOPRIL [Concomitant]
     Dosage: 4 mg, qd
  17. LANTUS [Concomitant]
     Dates: start: 201106, end: 20120209
  18. HUMALOG [Concomitant]
     Dates: start: 201106, end: 20120209
  19. INEXIUM [Concomitant]
     Dosage: 20 mg, qd
     Dates: start: 201107
  20. UVEDOSE [Concomitant]
     Dosage: One vial every 15 days
  21. EPOETIN [Concomitant]
     Indication: ANAEMIA
     Dosage: 1 vial evey 15 days
     Dates: start: 201106, end: 201201

REACTIONS (1)
  - Pancytopenia [Not Recovered/Not Resolved]
